FAERS Safety Report 7432460-6 (Version None)
Quarter: 2011Q2

REPORT INFORMATION
  Report Type: 
  Country: None (occurrence: None)
  Receive Date: 20110422
  Receipt Date: 20110419
  Transmission Date: 20111010
  Serious: Yes (Other)
  Sender: FDA-Public Use
  Company Number: GB-PFIZER INC-2011085937

PATIENT
  Sex: Female

DRUGS (2)
  1. CAPECITABINE [Interacting]
     Dosage: UNK
  2. PHENYTOIN [Suspect]
     Dosage: UNK

REACTIONS (2)
  - DRUG INTERACTION [None]
  - ANTICONVULSANT DRUG LEVEL INCREASED [None]
